FAERS Safety Report 7187189-9 (Version None)
Quarter: 2010Q4

REPORT INFORMATION
  Report Type: 
  Country: None (occurrence: None)
  Receive Date: 20101222
  Receipt Date: 20101206
  Transmission Date: 20110411
  Serious: Yes (Hospitalization)
  Sender: FDA-Public Use
  Company Number: NL-MEDIMMUNE-MEDI-0011928

PATIENT
  Sex: Male
  Weight: 8.81 kg

DRUGS (2)
  1. SYNAGIS [Suspect]
     Route: 030
     Dates: start: 20101005, end: 20101105
  2. SYNAGIS [Suspect]
     Route: 030
     Dates: start: 20101203, end: 20101203

REACTIONS (2)
  - RESPIRATORY SYNCYTIAL VIRUS INFECTION [None]
  - RESPIRATORY TRACT INFECTION [None]
